FAERS Safety Report 25706369 (Version 1)
Quarter: 2025Q3

REPORT INFORMATION
  Report Type: Spontaneous
  Country: US (occurrence: None)
  Receive Date: 20250820
  Receipt Date: 20250820
  Transmission Date: 20251020
  Serious: Yes (Hospitalization)
  Sender: FDA-CTU
  Company Number: None

PATIENT
  Age: 54 Year
  Sex: Male

DRUGS (10)
  1. DASATINIB [Suspect]
     Active Substance: DASATINIB
     Dosage: FREQUENCY : DAILY;?
     Route: 048
     Dates: start: 20250513
  2. ADACEL INJ [Concomitant]
  3. ALLOPURINOL [Concomitant]
     Active Substance: ALLOPURINOL
  4. ASPIRIN EC TAB 81 MG [Concomitant]
  5. FOLIC ACID TAB 1MG [Concomitant]
  6. MIRTAZAPINE TAB 15MG [Concomitant]
  7. ONDANSETRON TAB 4MG ODT [Concomitant]
  8. OXYCODONE [Concomitant]
     Active Substance: OXYCODONE
  9. SOFOSBUVIR\VELPATASVIR [Concomitant]
     Active Substance: SOFOSBUVIR\VELPATASVIR
  10. TYLENOL TAB 500MG [Concomitant]

REACTIONS (1)
  - Platelet count decreased [None]

NARRATIVE: CASE EVENT DATE: 20250819
